FAERS Safety Report 22534817 (Version 1)
Quarter: 2023Q2

REPORT INFORMATION
  Report Type: Spontaneous
  Country: DE (occurrence: DE)
  Receive Date: 20230608
  Receipt Date: 20230608
  Transmission Date: 20230722
  Serious: Yes (Hospitalization, Other)
  Sender: FDA-Public Use
  Company Number: None

PATIENT
  Age: 77 Year
  Sex: Female

DRUGS (18)
  1. PANTOPRAZOLE [Interacting]
     Active Substance: PANTOPRAZOLE
     Indication: Product used for unknown indication
     Dosage: 40 MILLIGRAM, QD (1-0-0)
     Route: 065
     Dates: start: 20230323, end: 20230509
  2. PIPERACILLIN AND TAZOBACTAM [Interacting]
     Active Substance: PIPERACILLIN SODIUM\TAZOBACTAM SODIUM
     Indication: Product used for unknown indication
     Dosage: 1 DOSAGE FORM, Q6H (1-1-1-1)
     Route: 065
     Dates: start: 20230426, end: 20230508
  3. METHOTREXATE [Interacting]
     Active Substance: METHOTREXATE
     Indication: Product used for unknown indication
     Dosage: UNK, QW (1X WEEKLY)
     Route: 065
     Dates: start: 20230414, end: 20230505
  4. SULFAMETHOXAZOLE\TRIMETHOPRIM [Interacting]
     Active Substance: SULFAMETHOXAZOLE\TRIMETHOPRIM
     Indication: Product used for unknown indication
     Dosage: 1 DOSAGE FORM, BID (1-0-1)
     Route: 065
     Dates: start: 20230426, end: 20230507
  5. METAMIZOL [Interacting]
     Active Substance: METAMIZOLE SODIUM
     Indication: Pain
     Dosage: UNK,PRN, SINGLE DOSES FOR PAIN AS SHORT INFUSION
     Route: 065
     Dates: start: 20230409, end: 20230507
  6. CARBIDOPA\LEVODOPA [Concomitant]
     Active Substance: CARBIDOPA\LEVODOPA
     Dosage: 1 DOSAGE FORM, QD (0-0-1)
     Route: 065
     Dates: start: 20230328, end: 20230509
  7. CARBIDOPA\LEVODOPA [Concomitant]
     Active Substance: CARBIDOPA\LEVODOPA
     Dosage: 2 DOSAGE FORM, QD (1-1-0-0)
     Route: 065
     Dates: start: 20230419, end: 20230509
  8. DRONABINOL [Concomitant]
     Active Substance: DRONABINOL
     Dosage: UNK (MORNING AND EVENING)
     Route: 065
     Dates: start: 20230421, end: 20230509
  9. ONDANSETRON [Concomitant]
     Active Substance: ONDANSETRON
     Dosage: 4 MILLIGRAM, PRN,4 MG SHORT INFUSION IF NEEDED
     Route: 065
     Dates: start: 20230404, end: 20230509
  10. BISOPROLOL [Concomitant]
     Active Substance: BISOPROLOL
     Dosage: 5 MILLIGRAM, QD (1-0-0)
     Route: 065
     Dates: start: 20230323, end: 20230509
  11. MIRTAZAPINE [Concomitant]
     Active Substance: MIRTAZAPINE
     Dosage: 15 MILLIGRAM, QD (0-0-1)
     Route: 065
     Dates: start: 20230420, end: 20230509
  12. APIXABAN [Concomitant]
     Active Substance: APIXABAN
     Dosage: 5 MILLIGRAM, BID, (1-0-1)
     Route: 065
     Dates: start: 20230426, end: 20230508
  13. SPIRONOLACTONE [Concomitant]
     Active Substance: SPIRONOLACTONE
     Dosage: 50 MILLIGRAM, QD (1-0-0)
     Route: 065
     Dates: start: 20230418, end: 20230508
  14. PREDNISOLONE [Concomitant]
     Active Substance: PREDNISOLONE
     Dosage: 2.5 MILLIGRAM, QD (0-1/2-0)
     Route: 065
     Dates: start: 20230323, end: 20230509
  15. LORAZEPAM [Concomitant]
     Active Substance: LORAZEPAM
     Dosage: UNK (0-0-0-1)
     Route: 065
     Dates: start: 20230327, end: 20230507
  16. SERTRALINE [Concomitant]
     Active Substance: SERTRALINE HYDROCHLORIDE
     Dosage: 100 MILLIGRAM, QD (1-0-0)
     Route: 065
     Dates: start: 20230409, end: 20230509
  17. PIRITRAMIDE [Concomitant]
     Active Substance: PIRITRAMIDE
     Indication: Pain
     Dosage: 7.5MG,PRN,SHORT INFUSION IF REQUIRED;SINGLE DOSE
     Route: 065
     Dates: start: 20230405, end: 20230509
  18. LEVOTHYROXINE [Concomitant]
     Active Substance: LEVOTHYROXINE
     Dosage: 150 MICROGRAM, QD (1-0-0)
     Route: 065
     Dates: start: 20230417, end: 20230509

REACTIONS (3)
  - Leukopenia [Not Recovered/Not Resolved]
  - Thrombocytopenia [Not Recovered/Not Resolved]
  - Drug interaction [Unknown]

NARRATIVE: CASE EVENT DATE: 20230504
